FAERS Safety Report 12262984 (Version 1)
Quarter: 2016Q2

REPORT INFORMATION
  Report Type: Spontaneous
  Country: US (occurrence: None)
  Receive Date: 20160412
  Receipt Date: 20160412
  Transmission Date: 20160815
  Serious: Yes (Other)
  Sender: FDA-Public Use
  Company Number: None

PATIENT
  Age: 54 Year
  Sex: Female
  Weight: 78.02 kg

DRUGS (7)
  1. VITAMIN D3 [Concomitant]
     Active Substance: CHOLECALCIFEROL
  2. GLUTEN FREE SUPPLEMENTS BIOTIN [Concomitant]
  3. MULTI-VITAMIN [Concomitant]
     Active Substance: .ALPHA.-TOCOPHEROL ACETATE, DL-\ASCORBIC ACID\CYANOCOBALAMIN\FLUORIDE ION\FOLIC ACID\NIACIN\PYRIDOXINE\RIBOFLAVIN\THIAMINE\VITAMIN A\VITAMIN D
  4. TIZANIDINE HCL 4MG CAPSULE, 4 MG [Suspect]
     Active Substance: TIZANIDINE HYDROCHLORIDE
     Indication: MUSCLE STRAIN
     Route: 048
     Dates: start: 20160404, end: 20160405
  5. TIZANIDINE HCL 4MG CAPSULE, 4 MG [Suspect]
     Active Substance: TIZANIDINE HYDROCHLORIDE
     Indication: SCIATICA
     Route: 048
     Dates: start: 20160404, end: 20160405
  6. ZYRTEC [Concomitant]
     Active Substance: CETIRIZINE HYDROCHLORIDE
  7. VITAMIN B COMPLEX [Concomitant]
     Active Substance: CYANOCOBALAMIN\DEXPANTHENOL\NIACINAMIDE\PYRIDOXINE HYDROCHLORIDE\RIBOFLAVIN 5^-PHOSPHATE SODIUM\THIAMINE HYDROCHLORIDE\VITAMIN B COMPLEX

REACTIONS (8)
  - Blister [None]
  - Rash generalised [None]
  - Rash macular [None]
  - Fluid retention [None]
  - Dysuria [None]
  - Generalised oedema [None]
  - Eye swelling [None]
  - Reaction to drug excipients [None]

NARRATIVE: CASE EVENT DATE: 20160405
